FAERS Safety Report 4695780-4 (Version None)
Quarter: 2005Q2

REPORT INFORMATION
  Report Type: 
  Country: None (occurrence: None)
  Receive Date: 20050621
  Receipt Date: 20050606
  Transmission Date: 20051028
  Serious: Yes (Hospitalization)
  Sender: FDA-Public Use
  Company Number: FR-JNJFOC-20050604061

PATIENT
  Age: 55 Year
  Sex: Female

DRUGS (8)
  1. TOPALGIC [Suspect]
     Indication: DRUG USE FOR UNKNOWN INDICATION
     Route: 049
  2. ARAVA [Suspect]
     Indication: RHEUMATOID ARTHRITIS
     Route: 049
  3. DOLIPRANE [Suspect]
     Indication: DRUG USE FOR UNKNOWN INDICATION
     Route: 049
  4. CELEBREX [Suspect]
     Indication: RHEUMATOID ARTHRITIS
     Route: 049
  5. OMEPRAZOLE [Concomitant]
     Route: 065
  6. CLIMASTON [Concomitant]
     Route: 049
  7. CLIMASTON [Concomitant]
     Route: 049
  8. APRANAX [Concomitant]
     Indication: RHEUMATOID ARTHRITIS
     Route: 049

REACTIONS (1)
  - DIFFUSE LARGE B-CELL LYMPHOMA [None]
